FAERS Safety Report 13689561 (Version 2)
Quarter: 2018Q2

REPORT INFORMATION
  Report Type: Report from Study
  Country: FR (occurrence: FR)
  Receive Date: 20170626
  Receipt Date: 20180618
  Transmission Date: 20180711
  Serious: Yes (Death)
  Sender: FDA-Public Use
  Company Number: PHHY2017FR088502

PATIENT
  Age: 90 Year
  Sex: Female

DRUGS (1)
  1. ZARZIO [Suspect]
     Active Substance: FILGRASTIM
     Indication: NEUTROPENIA
     Dosage: UNK
     Route: 041
     Dates: start: 20161017, end: 20161031

REACTIONS (1)
  - Death [Fatal]

NARRATIVE: CASE EVENT DATE: 20170402
